FAERS Safety Report 8024089-6 (Version None)
Quarter: 2012Q1

REPORT INFORMATION
  Report Type: 
  Country: None (occurrence: None)
  Receive Date: 20120105
  Receipt Date: 20111227
  Transmission Date: 20120608
  Serious: Yes (Death, Hospitalization)
  Sender: FDA-Public Use
  Company Number: US-JNJFOC-20111212373

PATIENT
  Age: 24 Year
  Sex: Female

DRUGS (4)
  1. QUETIAPINE [Suspect]
     Indication: ILL-DEFINED DISORDER
     Route: 065
  2. ACETAMINOPHEN [Suspect]
     Indication: ILL-DEFINED DISORDER
     Route: 048
  3. ACETAMINOPHEN [Suspect]
     Route: 048
  4. ETHANOL [Suspect]
     Indication: ILL-DEFINED DISORDER
     Route: 065

REACTIONS (1)
  - TOXICITY TO VARIOUS AGENTS [None]
